FAERS Safety Report 13554126 (Version 1)
Quarter: 2017Q2

REPORT INFORMATION
  Report Type: Report from Study
  Country: CA (occurrence: CA)
  Receive Date: 20170517
  Receipt Date: 20170517
  Transmission Date: 20170830
  Serious: Yes (Hospitalization)
  Sender: FDA-Public Use
  Company Number: CA-JNJFOC-20170511111

PATIENT
  Age: 17 Year
  Sex: Male
  Weight: 48.5 kg

DRUGS (3)
  1. REMICADE [Suspect]
     Active Substance: INFLIXIMAB
     Indication: RHEUMATOID ARTHRITIS
     Dosage: THERAPY DURATION: 2 HOURS 30 MINUTES
     Route: 042
  2. ADALAT [Concomitant]
     Active Substance: NIFEDIPINE
     Route: 065
     Dates: start: 201704
  3. ASA [Concomitant]
     Active Substance: ASPIRIN
     Route: 065
     Dates: start: 201704

REACTIONS (2)
  - Cough [Unknown]
  - Ear infection [Unknown]

NARRATIVE: CASE EVENT DATE: 20170403
